FAERS Safety Report 6439711-5 (Version None)
Quarter: 2009Q4

REPORT INFORMATION
  Report Type: 
  Country: None (occurrence: None)
  Receive Date: 20091113
  Receipt Date: 20090929
  Transmission Date: 20100525
  Serious: Yes (Other)
  Sender: FDA-Public Use
  Company Number: CA-PFIZER INC-2008094270

PATIENT
  Age: 26 Year
  Sex: Female
  Weight: 78 kg

DRUGS (4)
  1. DEPO-PROVERA [Suspect]
     Indication: CONTRACEPTION
     Dosage: UNK
     Dates: start: 19981201, end: 19990301
  2. CYCLEN [Concomitant]
  3. MARVELON [Concomitant]
     Dosage: UNK
     Dates: start: 19990701
  4. ALESSE [Concomitant]
     Indication: MENSTRUAL CYCLE MANAGEMENT
     Dosage: UNK
     Dates: start: 20050101

REACTIONS (14)
  - ALOPECIA [None]
  - BLOOD PRESSURE INCREASED [None]
  - CONFUSIONAL STATE [None]
  - DIARRHOEA [None]
  - HORMONE LEVEL ABNORMAL [None]
  - HYPOGLYCAEMIA [None]
  - LOSS OF CONSCIOUSNESS [None]
  - LOSS OF LIBIDO [None]
  - MENORRHAGIA [None]
  - METRORRHAGIA [None]
  - PANIC DISORDER [None]
  - PARASOMNIA [None]
  - TOOTH DISORDER [None]
  - WEIGHT INCREASED [None]
